FAERS Safety Report 11298969 (Version 1)
Quarter: 2015Q3

REPORT INFORMATION
  Report Type: Spontaneous
  Country: US (occurrence: US)
  Receive Date: 20150722
  Receipt Date: 20150722
  Transmission Date: 20151125
  Serious: Yes (Other)
  Sender: FDA-Public Use
  Company Number: US-ELI_LILLY_AND_COMPANY-US201206003847

PATIENT
  Sex: Male

DRUGS (12)
  1. LIVALO [Concomitant]
     Active Substance: PITAVASTATIN CALCIUM
  2. EFFIENT [Suspect]
     Active Substance: PRASUGREL HYDROCHLORIDE
     Dosage: 5MG
  3. CALCIUM [Concomitant]
     Active Substance: CALCIUM
  4. PEPCID [Concomitant]
     Active Substance: FAMOTIDINE
  5. CARVEDILOL. [Concomitant]
     Active Substance: CARVEDILOL
  6. VITAMIN D [Concomitant]
     Active Substance: CHOLECALCIFEROL
  7. MULTI-VIT [Concomitant]
     Active Substance: VITAMINS
  8. NIACIN. [Concomitant]
     Active Substance: NIACIN
  9. ASPIRIN. [Concomitant]
     Active Substance: ASPIRIN
  10. TRIFLEX                            /02118501/ [Concomitant]
  11. EFFIENT [Suspect]
     Active Substance: PRASUGREL HYDROCHLORIDE
     Dosage: 10MG
  12. SIMVASTATIN. [Concomitant]
     Active Substance: SIMVASTATIN

REACTIONS (1)
  - Epistaxis [Unknown]
